FAERS Safety Report 4959341-1 (Version None)
Quarter: 2006Q1

REPORT INFORMATION
  Report Type: 
  Country: None (occurrence: None)
  Receive Date: 20060331
  Receipt Date: 20060227
  Transmission Date: 20060701
  Serious: Yes (Other)
  Sender: FDA-Public Use
  Company Number: US-JNJFOC-20060300237

PATIENT
  Sex: Female

DRUGS (1)
  1. ORTHO EVRA [Suspect]
     Indication: CONTRACEPTION
     Route: 062
     Dates: start: 20030901

REACTIONS (15)
  - APPLICATION SITE DERMATITIS [None]
  - APPLICATION SITE ERYTHEMA [None]
  - APPLICATION SITE PRURITUS [None]
  - CONTUSION [None]
  - EYE PRURITUS [None]
  - HEARING IMPAIRED [None]
  - MUSCULOSKELETAL DISCOMFORT [None]
  - NASOPHARYNGEAL DISORDER [None]
  - POSTNASAL DRIP [None]
  - SCRATCH [None]
  - SINUSITIS [None]
  - SNEEZING [None]
  - STOMACH DISCOMFORT [None]
  - SYNCOPE [None]
  - VOMITING [None]
